FAERS Safety Report 18712205 (Version 1)
Quarter: 2021Q1

REPORT INFORMATION
  Report Type: Spontaneous
  Country: HN (occurrence: HN)
  Receive Date: 20210107
  Receipt Date: 20210107
  Transmission Date: 20210419
  Serious: Yes (Other)
  Sender: FDA-Public Use
  Company Number: HN-PFIZER INC-2021007040

PATIENT
  Age: 88 Year
  Sex: Female

DRUGS (2)
  1. LIPITOR [Suspect]
     Active Substance: ATORVASTATIN CALCIUM
     Dosage: 40 MG, DAILY (1 TABLET OF 40 MG PILL)
     Route: 048
     Dates: start: 2008, end: 2018
  2. LIPITOR [Suspect]
     Active Substance: ATORVASTATIN CALCIUM
     Dosage: 40 MG, DAILY (1/2 TABLET OF 80MG PILL)
     Route: 048
     Dates: start: 2018

REACTIONS (2)
  - Immobile [Unknown]
  - Renal disorder [Unknown]
